FAERS Safety Report 16026652 (Version 2)
Quarter: 2019Q1

REPORT INFORMATION
  Report Type: Spontaneous
  Country: US (occurrence: US)
  Receive Date: 20190303
  Receipt Date: 20190307
  Transmission Date: 20190418
  Serious: Yes (Death, Other)
  Sender: FDA-Public Use
  Company Number: US-ALLERGAN-1908063US

PATIENT
  Sex: Female

DRUGS (4)
  1. PRED FORTE [Suspect]
     Active Substance: PREDNISOLONE ACETATE
     Indication: CORNEAL TRANSPLANT
  2. TIMOPTIC [Concomitant]
     Active Substance: TIMOLOL MALEATE
     Indication: GLAUCOMA
     Dosage: UNK
     Route: 065
  3. RESTASIS [Suspect]
     Active Substance: CYCLOSPORINE
     Indication: DRY EYE
     Dosage: 2 GTT, BID
     Route: 047
  4. PRED FORTE [Suspect]
     Active Substance: PREDNISOLONE ACETATE
     Indication: GLAUCOMA
     Dosage: 1 GTT, QAM
     Route: 047
     Dates: start: 2011

REACTIONS (9)
  - Neovascular age-related macular degeneration [Unknown]
  - Lower respiratory tract infection [Unknown]
  - Weight increased [Unknown]
  - Pulmonary oedema [Unknown]
  - Peripheral swelling [Unknown]
  - Cardiac failure congestive [Fatal]
  - Dyspnoea [Unknown]
  - Atrial fibrillation [Unknown]
  - Neovascular age-related macular degeneration [Unknown]

NARRATIVE: CASE EVENT DATE: 2017
